FAERS Safety Report 6166984-9 (Version None)
Quarter: 2009Q2

REPORT INFORMATION
  Report Type: 
  Country: None (occurrence: None)
  Receive Date: 20090424
  Receipt Date: 20090409
  Transmission Date: 20091009
  Serious: Yes (Death, Life-Threatening, Hospitalization)
  Sender: FDA-Public Use
  Company Number: FR-GENENTECH-276512

PATIENT
  Sex: Female

DRUGS (5)
  1. MABTHERA [Suspect]
     Indication: LUPUS NEPHRITIS
     Dosage: 90 MG, 1/WEEK
     Route: 042
     Dates: start: 20080908, end: 20080929
  2. CORTICOSTEROID (UNK INGREDIENTS) [Concomitant]
     Indication: DRUG USE FOR UNKNOWN INDICATION
  3. MYCOPHENOLATE MOFETIL [Concomitant]
     Indication: DRUG USE FOR UNKNOWN INDICATION
  4. CYCLOPHOSPHAMIDE [Concomitant]
     Indication: DRUG USE FOR UNKNOWN INDICATION
  5. PREDNISONE [Concomitant]
     Indication: DRUG USE FOR UNKNOWN INDICATION

REACTIONS (3)
  - SEPSIS [None]
  - SHOCK [None]
  - VARICELLA [None]
